FAERS Safety Report 25093945 (Version 1)
Quarter: 2025Q1

REPORT INFORMATION
  Report Type: Spontaneous
  Country: US (occurrence: US)
  Receive Date: 20250319
  Receipt Date: 20250319
  Transmission Date: 20250408
  Serious: No
  Sender: GLAXOSMITHKLINE
  Company Number: US-GSKCCFUS-Case-02249059_AE-122440

PATIENT
  Age: 58 Year
  Sex: Female

DRUGS (2)
  1. JEMPERLI [Suspect]
     Active Substance: DOSTARLIMAB-GXLY
     Indication: Rectal cancer
     Dosage: 500 MG, Q3W
     Route: 042
     Dates: start: 20241226
  2. FERAHEME [Concomitant]
     Active Substance: FERUMOXYTOL NON-STOICHIOMETRIC MAGNETITE
     Indication: Product used for unknown indication
     Dates: start: 20250303

REACTIONS (4)
  - Diarrhoea [Recovering/Resolving]
  - COVID-19 [Unknown]
  - Coronavirus test positive [Unknown]
  - Off label use [Unknown]

NARRATIVE: CASE EVENT DATE: 20241226
